FAERS Safety Report 13680331 (Version 2)
Quarter: 2017Q3

REPORT INFORMATION
  Report Type: Report from Study
  Country: US (occurrence: US)
  Receive Date: 20170622
  Receipt Date: 20170727
  Transmission Date: 20171127
  Serious: Yes (Hospitalization, Other)
  Sender: FDA-Public Use
  Company Number: US-ENDO PHARMACEUTICALS INC-2017-003437

PATIENT
  Age: 64 Year
  Sex: Male
  Weight: 95.24 kg

DRUGS (10)
  1. XIAFLEX [Suspect]
     Active Substance: COLLAGENASE CLOSTRIDIUM HISTOLYTICUM
     Indication: PEYRONIE^S DISEASE
     Dosage: 0.58 MG, FIRST CYCLE, FIRST INJECTION
     Route: 026
     Dates: start: 201701
  2. ESCITALOPRAM [Concomitant]
     Active Substance: ESCITALOPRAM OXALATE
     Indication: STRESS
     Dosage: 10 MG, DAILY IN THE MORNING
     Route: 065
  3. REPATHA [Concomitant]
     Active Substance: EVOLOCUMAB
     Indication: BLOOD CHOLESTEROL ABNORMAL
     Dosage: 140 MG, EVERY TWO WEEKS ON SUNDAY
     Route: 065
     Dates: start: 201701
  4. METOPROLOL. [Concomitant]
     Active Substance: METOPROLOL
     Indication: HYPERTENSION
     Dosage: 50 MG, DAILY
     Route: 065
  5. TAMSULOSIN [Concomitant]
     Active Substance: TAMSULOSIN
     Indication: PROSTATIC DISORDER
     Dosage: 0.4 MG, DAILY IN THE MORNING
     Route: 065
  6. PANTOPRAZOLE [Concomitant]
     Active Substance: PANTOPRAZOLE
     Indication: EROSIVE OESOPHAGITIS
     Dosage: 40 MG, DAILY
     Route: 065
  7. XIAFLEX [Suspect]
     Active Substance: COLLAGENASE CLOSTRIDIUM HISTOLYTICUM
     Dosage: 0.58 MG, SECOND CYCLE, FIRST INJECTION
     Route: 026
     Dates: start: 20170221
  8. ASPRIN [Suspect]
     Active Substance: ASPIRIN
     Indication: ANTICOAGULANT THERAPY
     Dosage: 81 MG, DAILY IN THE MORNING
     Route: 065
  9. XIAFLEX [Suspect]
     Active Substance: COLLAGENASE CLOSTRIDIUM HISTOLYTICUM
     Dosage: 0.58 MG, FIRST CYCLE, SECOND INJECTION
     Route: 026
     Dates: start: 201701
  10. XIAFLEX [Suspect]
     Active Substance: COLLAGENASE CLOSTRIDIUM HISTOLYTICUM
     Dosage: 0.58 MG, SECOND CYCLE, SECOND INJECTION
     Route: 026
     Dates: start: 20170321, end: 20170321

REACTIONS (6)
  - Unevaluable event [Recovering/Resolving]
  - Spinal fusion surgery [Recovered/Resolved]
  - Inappropriate schedule of drug administration [Recovered/Resolved]
  - Intervertebral disc operation [Recovered/Resolved]
  - Post procedural haemorrhage [Recovering/Resolving]
  - Drug ineffective [Unknown]

NARRATIVE: CASE EVENT DATE: 2017
